FAERS Safety Report 9498384 (Version 1)
Quarter: 2013Q3

REPORT INFORMATION
  Report Type: Spontaneous
  Country: GB (occurrence: None)
  Receive Date: 20130830
  Receipt Date: 20130830
  Transmission Date: 20140515
  Serious: Yes (Hospitalization, Disabling)
  Sender: FDA-Public Use
  Company Number: GER/UKI/13/0034261

PATIENT
  Age: 84 Year
  Sex: Male
  Weight: 50 kg

DRUGS (14)
  1. ATORVASTATIN [Suspect]
     Indication: HYPERTENSION
     Dates: start: 20130418, end: 20130610
  2. ASPIRIN (ACETYLSALICYLIC ACID) [Concomitant]
  3. BISOPROLOL (BISOPROLOL) [Concomitant]
  4. CARBOCISTEINE (CARBOCISTEINE) [Concomitant]
  5. CLOPIDOGREL (CLOPIDPGREL) [Concomitant]
  6. DERMOL (CLOBETASOL PROPIONATE) [Concomitant]
  7. FORTISIP (FORTISIP) [Concomitant]
  8. GLYCERYL TRINITRATE (GLYCERYL TRINITRATE) [Concomitant]
  9. MOVICOL (POLYETHYL, GLYC. W/POTAS. CHLOR./SOD/ BICARB.) [Concomitant]
  10. MUPIROCIN (MUPIROCIN) [Concomitant]
  11. SALBUTAMOL (SALBUTAMOL) [Concomitant]
  12. SENNA (SENNA ALEXANDRINA) [Concomitant]
  13. SERETIDE (SERETIDE) [Concomitant]
  14. SPIRONOLACTONE (SPIRONOLACTONE) [Concomitant]

REACTIONS (14)
  - Renal failure acute [None]
  - Circulatory collapse [None]
  - Blister [None]
  - Anaemia [None]
  - Renal failure chronic [None]
  - Pruritus [None]
  - Oedema peripheral [None]
  - Rhabdomyolysis [None]
  - Skin erosion [None]
  - Chronic obstructive pulmonary disease [None]
  - Condition aggravated [None]
  - Blood sodium decreased [None]
  - Renal cyst [None]
  - Kidney small [None]
